FAERS Safety Report 19759027 (Version 2)
Quarter: 2022Q1

REPORT INFORMATION
  Report Type: Report from Study
  Country: US (occurrence: US)
  Receive Date: 20210827
  Receipt Date: 20220221
  Transmission Date: 20220423
  Serious: Yes (Hospitalization, Other)
  Sender: FDA-Public Use
  Company Number: US-SHIRE-US202014204

PATIENT
  Age: 67 Year
  Sex: Female

DRUGS (2)
  1. HUMAN IMMUNOGLOBULIN G [Suspect]
     Active Substance: HUMAN IMMUNOGLOBULIN G
     Indication: Hypogammaglobulinaemia
     Dosage: UNK
     Route: 065
  2. HUMAN IMMUNOGLOBULIN G [Suspect]
     Active Substance: HUMAN IMMUNOGLOBULIN G
     Indication: Selective polysaccharide antibody deficiency

REACTIONS (15)
  - Atrial fibrillation [Recovered/Resolved]
  - Facial bones fracture [Unknown]
  - Bronchiectasis [Unknown]
  - Upper respiratory fungal infection [Unknown]
  - Gastrointestinal disorder [Unknown]
  - Foot fracture [Unknown]
  - Herpes zoster [Unknown]
  - Hepatic lesion [Unknown]
  - Vitamin B12 decreased [Unknown]
  - Feeling cold [Unknown]
  - Fall [Unknown]
  - Ligament rupture [Unknown]
  - Arthropathy [Unknown]
  - Fatigue [Unknown]
  - Pain [Unknown]

NARRATIVE: CASE EVENT DATE: 20211210
